FAERS Safety Report 13706747 (Version 1)
Quarter: 2017Q2

REPORT INFORMATION
  Report Type: Spontaneous
  Country: US (occurrence: US)
  Receive Date: 20170630
  Receipt Date: 20170630
  Transmission Date: 20170830
  Serious: Yes (Hospitalization)
  Sender: FDA-Public Use
  Company Number: None

PATIENT
  Age: 63 Year
  Sex: Female
  Weight: 59.2 kg

DRUGS (3)
  1. LENALIDOMIDE (CC-5013) [Suspect]
     Active Substance: LENALIDOMIDE
     Dates: end: 20170625
  2. VELCADE [Suspect]
     Active Substance: BORTEZOMIB
     Dates: end: 20170622
  3. DEXAMETHASONE. [Suspect]
     Active Substance: DEXAMETHASONE
     Dates: end: 20170623

REACTIONS (6)
  - Limb discomfort [None]
  - Rib fracture [None]
  - Troponin increased [None]
  - Chest discomfort [None]
  - Abdominal distension [None]
  - Chest pain [None]

NARRATIVE: CASE EVENT DATE: 20170624
